FAERS Safety Report 25462117 (Version 1)
Quarter: 2025Q2

REPORT INFORMATION
  Report Type: Spontaneous
  Country: US (occurrence: None)
  Receive Date: 20250619
  Receipt Date: 20250619
  Transmission Date: 20250717
  Serious: Yes (Hospitalization)
  Sender: FDA-CTU
  Company Number: None

PATIENT
  Age: 86 Year
  Sex: Male
  Weight: 86.85 kg

DRUGS (3)
  1. LENVIMA [Suspect]
     Active Substance: LENVATINIB
     Indication: Thyroid cancer
     Dosage: FREQUENCY : DAILY;?
     Route: 048
     Dates: start: 20250217
  2. ELIQUIS [Concomitant]
     Active Substance: APIXABAN
  3. ASPIRIN [Concomitant]
     Active Substance: ASPIRIN

REACTIONS (3)
  - Large intestinal haemorrhage [None]
  - Haemoglobin decreased [None]
  - Blood iron decreased [None]

NARRATIVE: CASE EVENT DATE: 20250604
